FAERS Safety Report 10175416 (Version 2)
Quarter: 2014Q2

REPORT INFORMATION
  Report Type: Report from Study
  Country: ES (occurrence: ES)
  Receive Date: 20140515
  Receipt Date: 20140515
  Transmission Date: 20141212
  Serious: Yes (Hospitalization)
  Sender: FDA-Public Use
  Company Number: ES-GILEAD-2014-0098825

PATIENT
  Age: 55 Year
  Sex: Female
  Weight: 60 kg

DRUGS (10)
  1. SOFOSBUVIR [Suspect]
     Indication: HEPATITIS C
     Dosage: 400 MG, QD
     Route: 048
     Dates: start: 20140314, end: 20140325
  2. RIBAVIRIN [Suspect]
     Indication: HEPATITIS C
     Dosage: 1000 MG, QD
     Route: 048
     Dates: start: 20140324, end: 20140325
  3. ALDACTONE                          /00006201/ [Concomitant]
     Indication: ASCITES
     Dosage: UNK
     Route: 048
     Dates: start: 2011
  4. RANITIDINE [Concomitant]
     Indication: PROPHYLAXIS
     Dosage: UNK
     Route: 048
     Dates: start: 2011
  5. SPIRAXIN [Concomitant]
     Indication: ENCEPHALOPATHY
     Dosage: UNK
     Route: 048
     Dates: start: 2011
  6. NORFLOXACIN [Concomitant]
     Indication: INFECTION PROPHYLAXIS
     Dosage: UNK
     Route: 048
     Dates: start: 2012
  7. PROPANOLOL                         /00030001/ [Concomitant]
     Indication: PORTAL HYPERTENSION
     Dosage: UNK
     Route: 048
     Dates: start: 2011
  8. PROPANOLOL                         /00030001/ [Concomitant]
     Indication: GASTROOESOPHAGEAL VARICEAL HAEMORRHAGE PROPHYLAXIS
  9. ORFIDAL [Concomitant]
     Indication: ANXIETY
     Dosage: UNK
     Route: 048
     Dates: start: 2011
  10. ORFIDAL [Concomitant]
     Indication: ASCITES

REACTIONS (2)
  - Pleural effusion [Recovered/Resolved]
  - Oral pruritus [Recovered/Resolved]
